FAERS Safety Report 8094370-3 (Version None)
Quarter: 2012Q1

REPORT INFORMATION
  Report Type: 
  Country: None (occurrence: None)
  Receive Date: 20120130
  Receipt Date: 20120120
  Transmission Date: 20120608
  Serious: Yes (Hospitalization, Other)
  Sender: FDA-Public Use
  Company Number: US-BAYER-2011-008147

PATIENT
  Age: 34 Year
  Sex: Female
  Weight: 85.261 kg

DRUGS (8)
  1. DROSPIRENONE AND ETHINYL ESTRADIOL [Suspect]
     Indication: ACNE
     Dosage: UNK
     Dates: start: 20020101, end: 20090101
  2. FLONASE [Concomitant]
     Dosage: UNK
     Dates: start: 20061016
  3. AYR [Concomitant]
  4. ALLEGRA-D 12 HOUR [Concomitant]
     Dosage: UNK
     Dates: start: 20061016
  5. ZEGERID [Concomitant]
     Dosage: UNK
     Dates: start: 20081201
  6. MUCINEX [Concomitant]
     Dosage: UNK
     Dates: start: 20071023
  7. ZOLOFT [Concomitant]
  8. YASMIN [Suspect]
     Indication: ACNE
     Dosage: UNK
     Dates: start: 20020101, end: 20090101

REACTIONS (7)
  - PAIN IN EXTREMITY [None]
  - SWELLING [None]
  - THROMBOSIS [None]
  - PAIN [None]
  - INJURY [None]
  - EMOTIONAL DISTRESS [None]
  - DEEP VEIN THROMBOSIS [None]
